FAERS Safety Report 14996944 (Version 2)
Quarter: 2018Q2

REPORT INFORMATION
  Report Type: Report from Study
  Country: CA (occurrence: CA)
  Receive Date: 20180611
  Receipt Date: 20180627
  Transmission Date: 20180711
  Serious: Yes (Death)
  Sender: FDA-Public Use
  Company Number: CA-HLSUS-2018-CA-000936

PATIENT
  Age: 44 Year
  Sex: Female

DRUGS (5)
  1. VITAMIN C [Concomitant]
     Active Substance: ASCORBIC ACID
     Route: 048
  2. CLOZARIL [Suspect]
     Active Substance: CLOZAPINE
     Indication: SCHIZOPHRENIA
     Dosage: 200MG DAILY
     Route: 048
     Dates: start: 20100930
  3. VITAMIN D [Concomitant]
     Active Substance: CHOLECALCIFEROL
     Route: 048
  4. IRON SUPHATE [Concomitant]
     Route: 048
  5. ATROPINE DROPLETS [Concomitant]
     Route: 047

REACTIONS (2)
  - Death [Fatal]
  - Fracture [Unknown]

NARRATIVE: CASE EVENT DATE: 20180508
